FAERS Safety Report 8505788-6 (Version None)
Quarter: 2012Q3

REPORT INFORMATION
  Report Type: 
  Country: None (occurrence: None)
  Receive Date: 20120706
  Receipt Date: 20120706
  Transmission Date: 20120928
  Serious: Yes (Death)
  Sender: FDA-Public Use
  Company Number: None

PATIENT
  Age: 2 Year
  Sex: Male

DRUGS (1)
  1. FENTANYL [Suspect]
     Indication: ACCIDENTAL DEATH

REACTIONS (3)
  - OVERDOSE [None]
  - ACCIDENTAL DRUG INTAKE BY CHILD [None]
  - INCORRECT ROUTE OF DRUG ADMINISTRATION [None]
